FAERS Safety Report 8239441-3 (Version None)
Quarter: 2012Q1

REPORT INFORMATION
  Report Type: 
  Country: None (occurrence: None)
  Receive Date: 20120328
  Receipt Date: 20120319
  Transmission Date: 20120608
  Serious: Yes (Hospitalization)
  Sender: FDA-Public Use
  Company Number: US-BAYER-2011-114343

PATIENT
  Age: 30 Year
  Sex: Female
  Weight: 81.633 kg

DRUGS (19)
  1. XYZAL [Concomitant]
     Indication: MULTIPLE ALLERGIES
     Dosage: 5MG ? TABLET DAILY
     Route: 048
     Dates: start: 20071118
  2. FENTANYL-100 [Concomitant]
     Dosage: 12.5 MCG/HR EVERY 3 DAYS
  3. ULTRAM ER [Concomitant]
     Dosage: 300 MG, UNK
  4. SLOW FE [Concomitant]
     Dosage: EACH DAY
     Route: 048
  5. YAZ [Suspect]
     Indication: ENDOMETRIOSIS
     Dosage: UNK
     Dates: start: 20081201, end: 20090101
  6. TOPAMAX [Concomitant]
     Dosage: 100 MG, BID
  7. VITAMIN B-12 [Concomitant]
     Dosage: 250 MCG , UNK
     Route: 048
  8. DOXEPIN HCL [Concomitant]
     Dosage: 70 MG, BEDTIME
     Route: 048
  9. PHENERGAN HCL [Concomitant]
     Dosage: 25 MG, AS NECESSARY
     Route: 048
  10. CIPROFLOXACIN [Concomitant]
     Dosage: 500 MG, ONCE
  11. LIDODERM [Concomitant]
     Dosage: EXTERNAL PATCH
  12. KETOROLAC TROMETHAMINE [Concomitant]
     Indication: MIGRAINE
     Dosage: 10 MG AS NECESSARY
  13. TIZANIDINE HCL [Concomitant]
     Indication: MIGRAINE
     Dosage: 2-4 MG AS NECESSARY
     Route: 048
     Dates: start: 20071003
  14. EFFEXOR [Concomitant]
     Dosage: 150MG IN MORNING AND 75MG AT BEDTIME
     Route: 048
  15. CARAFATE [Concomitant]
  16. PREVACID [Concomitant]
     Dosage: 30 MG, ONCE
     Route: 048
  17. LORAZEPAM [Concomitant]
     Indication: ANXIETY
     Dosage: 0.5 MG, UNK
     Route: 048
     Dates: start: 20080713
  18. BUSPIRON [BUSPIRONE HYDROCHLORIDE] [Concomitant]
     Dosage: 15MG ? TABLET DAILY
     Route: 048
  19. AMITIZA [Concomitant]
     Indication: CONSTIPATION
     Dosage: 24MCG TWICE A DAY
     Route: 048
     Dates: start: 20081020

REACTIONS (7)
  - ABDOMINAL PAIN UPPER [None]
  - INJURY [None]
  - CHOLECYSTITIS CHRONIC [None]
  - GALLBLADDER INJURY [None]
  - ABDOMINAL PAIN [None]
  - PELVIC PAIN [None]
  - CHOLESTEROSIS [None]
